FAERS Safety Report 15439556 (Version 1)
Quarter: 2018Q4

REPORT INFORMATION
  Report Type: Spontaneous
  Country: JP (occurrence: JP)
  Receive Date: 20180928
  Receipt Date: 20180928
  Transmission Date: 20190204
  Serious: Yes (Other)
  Sender: FDA-Public Use
  Company Number: JP-TEVA-2018-JP-005328J

PATIENT
  Sex: Female

DRUGS (5)
  1. SULPIRIDE [Concomitant]
     Active Substance: SULPIRIDE
     Route: 048
  2. SUCRALFATE HYDRATE INTERNAL SOLUTION 10% ^TAIYO^ [Suspect]
     Active Substance: SUCRALFATE
     Indication: PRODUCT USED FOR UNKNOWN INDICATION
     Route: 048
  3. MYSLEE [Concomitant]
     Active Substance: ZOLPIDEM TARTRATE
     Route: 048
  4. SULPIRIDE [Concomitant]
     Active Substance: SULPIRIDE
     Route: 048
  5. MEILAX [Concomitant]
     Active Substance: ETHYL LOFLAZEPATE
     Route: 048

REACTIONS (5)
  - Arthralgia [Unknown]
  - Gingival disorder [Unknown]
  - Pyrexia [Unknown]
  - Pharyngeal oedema [Unknown]
  - Face oedema [Unknown]
